FAERS Safety Report 10229785 (Version 3)
Quarter: 2014Q2

REPORT INFORMATION
  Report Type: Report from Study
  Country: US (occurrence: US)
  Receive Date: 20140611
  Receipt Date: 20140624
  Transmission Date: 20141212
  Serious: Yes (Hospitalization)
  Sender: FDA-Public Use
  Company Number: PHHO2013US005104

PATIENT
  Age: 66 Year
  Sex: Male
  Weight: 68.93 kg

DRUGS (1)
  1. ZYKADIA [Suspect]
     Indication: NON-SMALL CELL LUNG CANCER
     Dosage: 600 MG, DAILY
     Route: 048
     Dates: start: 20130325

REACTIONS (1)
  - Pneumonia [Recovered/Resolved]
